FAERS Safety Report 7463066-0 (Version None)
Quarter: 2011Q2

REPORT INFORMATION
  Report Type: 
  Country: None (occurrence: None)
  Receive Date: 20110506
  Receipt Date: 20110218
  Transmission Date: 20111010
  Serious: Yes (Hospitalization)
  Sender: FDA-Public Use
  Company Number: US-BAYER-201024988NA

PATIENT
  Age: 25 Year
  Sex: Female
  Weight: 61.678 kg

DRUGS (7)
  1. METABOLIFE [Concomitant]
     Dosage: UNK UNK, TID
  2. YAZ [Suspect]
     Indication: CONTRACEPTION
     Dosage: UNK
     Dates: start: 20070101, end: 20080101
  3. YASMIN [Suspect]
     Indication: CONTRACEPTION
     Dosage: UNK
     Route: 048
     Dates: start: 20040101, end: 20080101
  4. HYCOSAMINE [Concomitant]
     Dosage: 0.125 MG, PRN
  5. ALBUTEROL [Concomitant]
     Route: 055
  6. DRUGS FOR FUNCTIONAL GASTROINTEST. DISORDERS [Concomitant]
  7. VITAMIN E [Concomitant]

REACTIONS (2)
  - PULMONARY EMBOLISM [None]
  - HAEMOPTYSIS [None]
